FAERS Safety Report 15050963 (Version 2)
Quarter: 2020Q2

REPORT INFORMATION
  Report Type: Spontaneous
  Country: US (occurrence: US)
  Receive Date: 20180622
  Receipt Date: 20200616
  Transmission Date: 20200713
  Serious: No
  Sender: FDA-Public Use
  Company Number: US-ASTELLAS-2018US014892

PATIENT
  Age: 86 Year
  Sex: Female

DRUGS (1)
  1. VESICARE [Suspect]
     Active Substance: SOLIFENACIN SUCCINATE
     Indication: PRODUCT USED FOR UNKNOWN INDICATION
     Route: 065

REACTIONS (6)
  - Influenza [Unknown]
  - Nocturia [Unknown]
  - Product dose omission [Unknown]
  - Drug ineffective [Unknown]
  - Memory impairment [Unknown]
  - Malaise [Unknown]
